FAERS Safety Report 11753422 (Version 3)
Quarter: 2016Q1

REPORT INFORMATION
  Report Type: Report from Study
  Country: CA (occurrence: CA)
  Receive Date: 20151119
  Receipt Date: 20160128
  Transmission Date: 20160525
  Serious: Yes (Death, Hospitalization)
  Sender: FDA-Public Use
  Company Number: CA-ROCHE-1626677

PATIENT
  Age: 70 Year
  Sex: Female

DRUGS (9)
  1. ESBRIET [Suspect]
     Active Substance: PIRFENIDONE
     Route: 048
     Dates: start: 20150806
  2. RABEPRAZOLE [Concomitant]
     Active Substance: RABEPRAZOLE
     Route: 065
  3. IRBESARTAN. [Concomitant]
     Active Substance: IRBESARTAN
     Route: 065
  4. LIPITOR [Concomitant]
     Active Substance: ATORVASTATIN CALCIUM
     Route: 065
  5. METFORMIN [Concomitant]
     Active Substance: METFORMIN HYDROCHLORIDE
     Route: 065
  6. AMITRIPTYLINE [Concomitant]
     Active Substance: AMITRIPTYLINE
  7. VICTOZA [Concomitant]
     Active Substance: LIRAGLUTIDE
  8. ESBRIET [Suspect]
     Active Substance: PIRFENIDONE
     Indication: IDIOPATHIC PULMONARY FIBROSIS
     Route: 048
     Dates: start: 20150730
  9. ESBRIET [Suspect]
     Active Substance: PIRFENIDONE
     Dosage: SUSPENDED AS OF 11-NOV-2015
     Route: 048
     Dates: start: 20150813

REACTIONS (7)
  - Oesophageal varices haemorrhage [Fatal]
  - Hepatic cirrhosis [Not Recovered/Not Resolved]
  - Oesophageal perforation [Unknown]
  - Loss of consciousness [Recovered/Resolved]
  - Hot flush [Recovering/Resolving]
  - Nausea [Recovered/Resolved]
  - Haematemesis [Recovering/Resolving]

NARRATIVE: CASE EVENT DATE: 20150813
